FAERS Safety Report 7978937-6 (Version None)
Quarter: 2011Q4

REPORT INFORMATION
  Report Type: 
  Country: None (occurrence: None)
  Receive Date: 20111214
  Receipt Date: 20111207
  Transmission Date: 20120403
  Serious: Yes (Hospitalization)
  Sender: FDA-Public Use
  Company Number: US-SANOFI-AVENTIS-2011SA080302

PATIENT
  Sex: Female

DRUGS (3)
  1. METFORMIN HCL [Concomitant]
  2. SOLOSTAR [Suspect]
  3. LANTUS [Suspect]
     Dosage: 15-20 UNITS DAILY
     Route: 058

REACTIONS (2)
  - DEPRESSION [None]
  - WEIGHT DECREASED [None]
